FAERS Safety Report 5574181-0 (Version None)
Quarter: 2007Q4

REPORT INFORMATION
  Report Type: 
  Country: None (occurrence: None)
  Receive Date: 20071221
  Receipt Date: 20071213
  Transmission Date: 20080405
  Serious: Yes (Death)
  Sender: FDA-Public Use
  Company Number: 2007BI021010

PATIENT
  Age: 51 Year
  Sex: Female

DRUGS (2)
  1. NATALIZUMAB [Suspect]
     Indication: MULTIPLE SCLEROSIS
     Dosage: 300 MG;QM;IV
     Route: 042
     Dates: start: 20070126, end: 20070913
  2. AVONEX [Concomitant]

REACTIONS (2)
  - MULTIPLE SCLEROSIS [None]
  - PULMONARY EMBOLISM [None]
